FAERS Safety Report 8070890-2 (Version None)
Quarter: 2012Q1

REPORT INFORMATION
  Report Type: 
  Country: None (occurrence: None)
  Receive Date: 20120125
  Receipt Date: 20120119
  Transmission Date: 20120608
  Serious: Yes (Other)
  Sender: FDA-Public Use
  Company Number: US-PFIZER INC-2012016031

PATIENT
  Sex: Female
  Weight: 60.771 kg

DRUGS (5)
  1. LASIX [Concomitant]
     Indication: FLUID RETENTION
     Dosage: UNK
  2. GLUCOTROL [Concomitant]
     Indication: DIABETES MELLITUS
     Dosage: UNK
  3. LANOXIN [Concomitant]
     Indication: HEART RATE IRREGULAR
     Dosage: UNK
  4. LIPITOR [Suspect]
     Indication: BLOOD CHOLESTEROL INCREASED
     Dosage: 20 MG, 1X/DAY
     Route: 048
     Dates: end: 20120101
  5. TOPROL-XL [Concomitant]
     Dosage: UNK

REACTIONS (2)
  - HYPERTENSION [None]
  - BLOOD CHOLESTEROL INCREASED [None]
